FAERS Safety Report 4524822-1 (Version None)
Quarter: 2004Q4

REPORT INFORMATION
  Report Type: 
  Country: None (occurrence: None)
  Receive Date: 20041117
  Receipt Date: 20031107
  Transmission Date: 20050328
  Serious: Yes (Other)
  Sender: FDA-Public Use
  Company Number: C2003-2954.01

PATIENT
  Age: 46 Year
  Sex: Female

DRUGS (9)
  1. CLOZAPINE [Suspect]
     Dosage: 50MG Q HS, ORAL
     Route: 048
     Dates: start: 20030904, end: 20031104
  2. CLOZAPINE [Suspect]
     Dosage: 700MG Q HS, ORAL
     Route: 048
     Dates: start: 20030904, end: 20031104
  3. DESMORPRESSIN ACETATE [Concomitant]
  4. DIVALPROEX SODIUM [Concomitant]
  5. HYDROCHLOROTHIAZIDE [Concomitant]
  6. ISOSORBIDE [Concomitant]
  7. METOPROLOL [Concomitant]
  8. PANTROPRAZOLE SODIUM [Concomitant]
  9. RAMIPRIL [Concomitant]

REACTIONS (1)
  - NEUTROPENIA [None]
